FAERS Safety Report 18331906 (Version 1)
Quarter: 2020Q3

REPORT INFORMATION
  Report Type: Report from Study
  Country: CO (occurrence: CO)
  Receive Date: 20200930
  Receipt Date: 20200930
  Transmission Date: 20201103
  Serious: Yes (Other)
  Sender: FDA-Public Use
  Company Number: CO-JNJFOC-20200939855

PATIENT
  Age: 54 Year
  Sex: Male
  Weight: 72 kg

DRUGS (1)
  1. SIMPONI [Suspect]
     Active Substance: GOLIMUMAB
     Indication: ANKYLOSING SPONDYLITIS
     Route: 058
     Dates: start: 20200826

REACTIONS (1)
  - Syphilis [Not Recovered/Not Resolved]

NARRATIVE: CASE EVENT DATE: 20200826
